FAERS Safety Report 10620038 (Version 1)
Quarter: 2014Q4

REPORT INFORMATION
  Report Type: Spontaneous
  Country: US (occurrence: None)
  Receive Date: 20141126
  Receipt Date: 20141126
  Transmission Date: 20150529
  Serious: Yes (Other)
  Sender: FDA-Public Use
  Company Number: 2014-US-015534

PATIENT
  Age: 55 Year
  Sex: Female
  Weight: 127 kg

DRUGS (14)
  1. VERAPAMIL (VERAPAMIL HYDROCHLORIDE) [Concomitant]
  2. SERTRALINE [Concomitant]
     Active Substance: SERTRALINE HYDROCHLORIDE
  3. COMBIVENT (PRATROPIUM BROMIDE, SALBUTAMOL SULFATE) [Concomitant]
  4. ATENOLOL (ATENOLOL) [Concomitant]
     Active Substance: ATENOLOL
  5. SYNTHROID [Concomitant]
     Active Substance: LEVOTHYROXINE SODIUM
  6. BACLOFEN (BACLOFEN) [Concomitant]
     Active Substance: BACLOFEN
  7. NAPROXEN (NAPROXEN) [Concomitant]
     Active Substance: NAPROXEN
  8. DULOXETINE (DULOXETINE) [Concomitant]
  9. FLONASE [Concomitant]
     Active Substance: FLUTICASONE PROPIONATE
  10. XYREM [Suspect]
     Active Substance: SODIUM OXYBATE
     Indication: FIBROMYALGIA
     Route: 048
     Dates: start: 200909
  11. XYREM [Suspect]
     Active Substance: SODIUM OXYBATE
     Indication: NARCOLEPSY
     Route: 048
     Dates: start: 200909
  12. GABAPENTIN (GABAPENTIN) [Concomitant]
     Active Substance: GABAPENTIN
  13. HYDROCODONE/APAP (HYDROCODONE BITARTRATE, PARACETAMOL) [Concomitant]
  14. NITROSLAT (GLYCERYL TRINITRATE) [Concomitant]

REACTIONS (1)
  - Rheumatoid arthritis [None]

NARRATIVE: CASE EVENT DATE: 20141111
